FAERS Safety Report 24000302 (Version 2)
Quarter: 2024Q3

REPORT INFORMATION
  Report Type: Spontaneous
  Country: DE (occurrence: DE)
  Receive Date: 20240621
  Receipt Date: 20240904
  Transmission Date: 20241017
  Serious: Yes (Hospitalization, Other)
  Sender: NOVARTIS
  Company Number: DE-002147023-NVSC2024DE128007

PATIENT
  Sex: Male
  Weight: 85 kg

DRUGS (6)
  1. ENTRESTO [Suspect]
     Active Substance: SACUBITRIL\VALSARTAN
     Indication: Heart failure with reduced ejection fraction
     Dosage: UNK (24 MG/ 26 MG)
     Route: 065
  2. ENTRESTO [Suspect]
     Active Substance: SACUBITRIL\VALSARTAN
     Dosage: UNK (12 MG / 13 MG (HALF A DOSAGE))
     Route: 065
  3. EPLERENONE [Concomitant]
     Active Substance: EPLERENONE
     Indication: Product used for unknown indication
     Dosage: UNK
     Route: 065
  4. METOPROLOL [Concomitant]
     Active Substance: METOPROLOL
     Indication: Product used for unknown indication
     Dosage: 95 MG
     Route: 065
  5. DAPAGLIFLOZIN [Concomitant]
     Active Substance: DAPAGLIFLOZIN
     Indication: Product used for unknown indication
     Dosage: 10 MG
     Route: 065
  6. BENSERAZIDE HYDROCHLORIDE\LEVODOPA [Concomitant]
     Active Substance: BENSERAZIDE HYDROCHLORIDE\LEVODOPA
     Indication: Product used for unknown indication
     Dosage: UNK
     Route: 065

REACTIONS (4)
  - Syncope [Recovering/Resolving]
  - Blood pressure decreased [Recovering/Resolving]
  - Intentional underdose [Unknown]
  - Off label use [Unknown]

NARRATIVE: CASE EVENT DATE: 20240301
